FAERS Safety Report 7180128-6 (Version None)
Quarter: 2010Q4

REPORT INFORMATION
  Report Type: 
  Country: None (occurrence: None)
  Receive Date: 20101123
  Receipt Date: 20100805
  Transmission Date: 20110411
  Serious: No
  Sender: FDA-Public Use
  Company Number: 016651

PATIENT
  Sex: Female
  Weight: 69.5 kg

DRUGS (8)
  1. CIMZIA [Suspect]
     Indication: CROHN'S DISEASE
     Dosage: (400 MG X/MONTH SUBCUTANEOUS)
     Route: 058
     Dates: start: 20081101
  2. MESALAMINE [Concomitant]
  3. LOMOTIL  /00034001/ [Concomitant]
  4. METFORMIN [Concomitant]
  5. ENALAPRIL [Concomitant]
  6. CRESTOR [Concomitant]
  7. TRAZODONE HCL [Concomitant]
  8. LORTAB [Concomitant]

REACTIONS (3)
  - MUSCLE ATROPHY [None]
  - MUSCULAR WEAKNESS [None]
  - WEIGHT DECREASED [None]
